FAERS Safety Report 13468361 (Version 1)
Quarter: 2017Q2

REPORT INFORMATION
  Report Type: Spontaneous
  Country: US (occurrence: US)
  Receive Date: 20170421
  Receipt Date: 20170421
  Transmission Date: 20170830
  Serious: Yes (Hospitalization, Other)
  Sender: FDA-Public Use
  Company Number: US-LANNETT COMPANY, INC.-US-2017LAN000712

PATIENT
  Age: 36 Year
  Sex: Female

DRUGS (1)
  1. DIGOXIN. [Suspect]
     Active Substance: DIGOXIN
     Indication: PRODUCT USED FOR UNKNOWN INDICATION
     Dosage: 375 ?G, UNK
     Route: 037

REACTIONS (4)
  - Nerve injury [Not Recovered/Not Resolved]
  - Wrong drug administered [Unknown]
  - Disorientation [Not Recovered/Not Resolved]
  - Unresponsive to stimuli [Recovered/Resolved with Sequelae]
